FAERS Safety Report 13430553 (Version 1)
Quarter: 2017Q2

REPORT INFORMATION
  Report Type: Spontaneous
  Country: US (occurrence: US)
  Receive Date: 20170411
  Receipt Date: 20170411
  Transmission Date: 20170830
  Serious: No
  Sender: FDA-Public Use
  Company Number: None

PATIENT
  Age: 40 Year
  Sex: Male
  Weight: 66.8 kg

DRUGS (1)
  1. GADODIAMIDE [Suspect]
     Active Substance: GADODIAMIDE
     Dates: start: 20170207

REACTIONS (1)
  - Cough [None]

NARRATIVE: CASE EVENT DATE: 20170207
